FAERS Safety Report 17484536 (Version 1)
Quarter: 2020Q1

REPORT INFORMATION
  Report Type: Spontaneous
  Country: US (occurrence: US)
  Receive Date: 20200302
  Receipt Date: 20200302
  Transmission Date: 20200409
  Serious: Yes (Hospitalization)
  Sender: FDA-Public Use
  Company Number: US-TEVA-2020-US-1191308

PATIENT
  Sex: Female
  Weight: 17 kg

DRUGS (3)
  1. PROGLYCEM [Suspect]
     Active Substance: DIAZOXIDE
     Indication: HYPERINSULINISM
     Dosage: 2.4 ML DAILY; 1.2 ML, TWICE A DAY
     Route: 065
     Dates: start: 201910
  2. PROGLYCEM [Suspect]
     Active Substance: DIAZOXIDE
     Dosage: 2.4 ML DAILY;
     Route: 065
  3. PROGLYCEM [Suspect]
     Active Substance: DIAZOXIDE
     Dosage: DECREASED DOSE BY 8%
     Route: 065

REACTIONS (2)
  - Seizure [Unknown]
  - Blood growth hormone abnormal [Not Recovered/Not Resolved]
